FAERS Safety Report 25628929 (Version 1)
Quarter: 2025Q3

REPORT INFORMATION
  Report Type: Spontaneous
  Country: LB (occurrence: LB)
  Receive Date: 20250731
  Receipt Date: 20250731
  Transmission Date: 20251020
  Serious: Yes (Death, Hospitalization)
  Sender: PFIZER
  Company Number: LB-PFIZER INC-PV202500048689

PATIENT
  Age: 68 Year
  Sex: Male

DRUGS (3)
  1. LORBRENA [Suspect]
     Active Substance: LORLATINIB
     Indication: Non-small cell lung cancer
     Dosage: 100 MG, 1X/DAY
     Dates: start: 202502, end: 202504
  2. LORBRENA [Suspect]
     Active Substance: LORLATINIB
     Dates: end: 202504
  3. CORTISONE [Concomitant]
     Active Substance: CORTISONE

REACTIONS (6)
  - Metastases to central nervous system [Fatal]
  - Loss of consciousness [Fatal]
  - Seizure [Recovering/Resolving]
  - Gait disturbance [Recovering/Resolving]
  - Micturition disorder [Recovering/Resolving]
  - Off label use [Unknown]
